FAERS Safety Report 15424483 (Version 1)
Quarter: 2018Q3

REPORT INFORMATION
  Report Type: Report from Study
  Country: AU (occurrence: AU)
  Receive Date: 20180925
  Receipt Date: 20180925
  Transmission Date: 20181010
  Serious: Yes (Other)
  Sender: FDA-Public Use
  Company Number: AU-JNJFOC-20180433249

PATIENT
  Age: 57 Year
  Sex: Female

DRUGS (1)
  1. STELARA [Suspect]
     Active Substance: USTEKINUMAB
     Indication: PSORIASIS
     Route: 058
     Dates: start: 20171109, end: 201804

REACTIONS (5)
  - Psoriasis [Unknown]
  - Pulmonary pain [Unknown]
  - Staphylococcal infection [Unknown]
  - Fatigue [Unknown]
  - Pharyngitis [Unknown]

NARRATIVE: CASE EVENT DATE: 201804
